FAERS Safety Report 5737801-3 (Version None)
Quarter: 2008Q2

REPORT INFORMATION
  Report Type: 
  Country: None (occurrence: None)
  Receive Date: 20080514
  Receipt Date: 20080506
  Transmission Date: 20081010
  Serious: Yes (Other)
  Sender: FDA-Public Use
  Company Number: US-JNJFOC-20071204147

PATIENT
  Weight: 85 kg

DRUGS (2)
  1. REMICADE [Suspect]
     Indication: SARCOIDOSIS
     Dosage: TOTAL NUMBER OF INFUSIONS= 6
     Route: 042
  2. METHOTREXATE [Suspect]
     Indication: SARCOIDOSIS

REACTIONS (1)
  - MYCOSIS FUNGOIDES [None]
